FAERS Safety Report 13576346 (Version 3)
Quarter: 2017Q2

REPORT INFORMATION
  Report Type: Report from Study
  Country: US (occurrence: US)
  Receive Date: 20170524
  Receipt Date: 20170630
  Transmission Date: 20170830
  Serious: Yes (Hospitalization, Other)
  Sender: FDA-Public Use
  Company Number: US-SUN PHARMACEUTICAL INDUSTRIES LTD-2017US-141413

PATIENT
  Age: 72 Year
  Sex: Male
  Weight: 103 kg

DRUGS (10)
  1. VALPROIC ACID. [Interacting]
     Active Substance: VALPROIC ACID
     Dosage: 40 MG/KG, DAILY
     Route: 065
     Dates: start: 20150912
  2. VALPROIC ACID. [Interacting]
     Active Substance: VALPROIC ACID
     Dosage: ON HD13
     Route: 065
     Dates: start: 20150913
  3. VALPROIC ACID. [Interacting]
     Active Substance: VALPROIC ACID
     Dosage: ON HD13, BOLUS
     Route: 065
     Dates: start: 20150913
  4. VALPROIC ACID. [Suspect]
     Active Substance: VALPROIC ACID
     Indication: MYOCLONUS
     Dosage: ON HD14
     Route: 065
     Dates: start: 20150914
  5. VALPROIC ACID. [Interacting]
     Active Substance: VALPROIC ACID
     Dosage: UNK
     Route: 065
     Dates: start: 20150912
  6. ACETYLSALICYLIC ACID [Interacting]
     Active Substance: ASPIRIN
     Indication: PRODUCT USED FOR UNKNOWN INDICATION
     Dosage: UNK
     Route: 065
     Dates: start: 20150831
  7. MIDAZOLAM [Concomitant]
     Active Substance: MIDAZOLAM HYDROCHLORIDE
     Indication: MYOCLONUS
     Route: 065
  8. VALPROIC ACID. [Interacting]
     Active Substance: VALPROIC ACID
     Dosage: 30 MG/KG, DAILY
     Route: 065
     Dates: start: 20150901
  9. PROPOFOL. [Interacting]
     Active Substance: PROPOFOL
     Indication: PRODUCT USED FOR UNKNOWN INDICATION
     Dosage: UNK
     Route: 065
     Dates: start: 20150903
  10. LEVETIRACETAM. [Concomitant]
     Active Substance: LEVETIRACETAM
     Indication: MYOCLONUS
     Route: 065

REACTIONS (5)
  - Drug prescribing error [Unknown]
  - Hyperammonaemia [Unknown]
  - Drug interaction [Unknown]
  - Hepatic function abnormal [Unknown]
  - Drug level changed [Unknown]
